FAERS Safety Report 8889978 (Version 1)
Quarter: 2012Q4

REPORT INFORMATION
  Report Type: Spontaneous
  Country: JP (occurrence: None)
  Receive Date: 20121031
  Receipt Date: 20121031
  Transmission Date: 20130627
  Serious: Yes (Hospitalization)
  Sender: FDA-Public Use
  Company Number: AE-SPE-2012-022

PATIENT
  Age: 3 Year
  Sex: Male

DRUGS (1)
  1. MEIACT MS FINE GRANULES (CEFDITOREN PIVOXIL) [Suspect]
     Route: 048

REACTIONS (1)
  - Haemolytic anaemia [None]
